FAERS Safety Report 24679458 (Version 1)
Quarter: 2024Q4

REPORT INFORMATION
  Report Type: Spontaneous
  Country: US (occurrence: US)
  Receive Date: 20241129
  Receipt Date: 20241129
  Transmission Date: 20250115
  Serious: Yes (Death, Life-Threatening, Hospitalization, Other)
  Sender: CADILA
  Company Number: US-CPL-004794

PATIENT
  Age: 10 Month
  Sex: Male

DRUGS (5)
  1. OLANZAPINE [Suspect]
     Active Substance: OLANZAPINE
     Indication: Delirium
     Dosage: PRN
  2. ACETAMINOPHEN [Concomitant]
     Active Substance: ACETAMINOPHEN
  3. LORAZEPAM [Concomitant]
     Active Substance: LORAZEPAM
  4. MORPHINE [Concomitant]
     Active Substance: MORPHINE
  5. MIDAZOLAM [Concomitant]
     Active Substance: MIDAZOLAM

REACTIONS (1)
  - Neuroleptic malignant syndrome [Fatal]
